FAERS Safety Report 24275873 (Version 1)
Quarter: 2024Q3

REPORT INFORMATION
  Report Type: Report from Study
  Country: US (occurrence: None)
  Receive Date: 20240903
  Receipt Date: 20240903
  Transmission Date: 20241017
  Serious: Yes (Other)
  Sender: ASTRAZENECA
  Company Number: 2024A194247

PATIENT
  Sex: Female

DRUGS (1)
  1. FARXIGA [Suspect]
     Active Substance: DAPAGLIFLOZIN PROPANEDIOL
     Route: 048

REACTIONS (6)
  - Throat cancer [Unknown]
  - Depression [Unknown]
  - Hypertension [Unknown]
  - Weight decreased [Unknown]
  - Blood pressure abnormal [Unknown]
  - Anxiety [Unknown]
